FAERS Safety Report 4688481-X (Version None)
Quarter: 2005Q2

REPORT INFORMATION
  Report Type: 
  Country: None (occurrence: None)
  Receive Date: 20050609
  Receipt Date: 20050523
  Transmission Date: 20051028
  Serious: Yes (Hospitalization)
  Sender: FDA-Public Use
  Company Number: 214812

PATIENT
  Age: 54 Year
  Sex: Male
  Weight: 74 kg

DRUGS (2)
  1. MABTHERA(RITUXIMAB) CONC FOR SOLUTION FOR INFUSION, 100 MG [Suspect]
     Indication: CHRONIC LYMPHOCYTIC LEUKAEMIA
     Dosage: 701.25 MG, 1/WEEK, INTRAVENOUS
     Route: 042
     Dates: start: 20040812, end: 20040812
  2. MABTHERA(RITUXIMAB) CONC FOR SOLUTION FOR INFUSION, 100 MG [Suspect]
     Indication: CHRONIC LYMPHOCYTIC LEUKAEMIA
     Dosage: 701.25 MG, 1/WEEK, INTRAVENOUS
     Route: 042
     Dates: start: 20040820, end: 20040827

REACTIONS (2)
  - BONE MARROW TRANSPLANT [None]
  - FEBRILE BONE MARROW APLASIA [None]
